FAERS Safety Report 7498327-2 (Version None)
Quarter: 2011Q2

REPORT INFORMATION
  Report Type: 
  Country: None (occurrence: None)
  Receive Date: 20110524
  Receipt Date: 20080121
  Transmission Date: 20111010
  Serious: Yes (Death, Hospitalization, Other)
  Sender: FDA-Public Use
  Company Number: US-BAYER-200812138NA

PATIENT
  Age: 75 Year
  Sex: Female
  Weight: 48.073 kg

DRUGS (17)
  1. ASPIRIN [Concomitant]
     Dosage: 325 MG
     Route: 048
     Dates: start: 20050801, end: 20050822
  2. NITROGLYCERIN [Concomitant]
     Dosage: UNK
     Dates: start: 20050830, end: 20050830
  3. TRASYLOL [Suspect]
     Indication: CORONARY ARTERY BYPASS
     Dosage: 200 ML PRIME PUMP
     Route: 042
     Dates: start: 20050830
  4. ALTACE [Concomitant]
     Dosage: 10 MG
     Route: 048
     Dates: start: 20050701, end: 20050829
  5. PENTOXIFYLLINE [Concomitant]
     Dosage: 400 MG
     Route: 048
     Dates: start: 20010901, end: 20050825
  6. FOSAMAX [Concomitant]
     Dosage: 20 MG
     Route: 048
     Dates: start: 20041002, end: 20050821
  7. HEPARIN [Concomitant]
     Dosage: 50 MG 1030
     Route: 042
     Dates: start: 20050830, end: 20050830
  8. EPINEPHRINE [Concomitant]
     Dosage: UNK
     Route: 041
     Dates: start: 20050830, end: 20050830
  9. PLASMA [Concomitant]
     Dosage: 4 UNITS
     Route: 042
     Dates: start: 20050830, end: 20050830
  10. RED BLOOD CELLS [Concomitant]
     Dosage: 1820 CC
     Route: 042
     Dates: start: 20050830, end: 20050830
  11. VERPAMIL HCL [Concomitant]
     Dosage: 240MG
     Route: 048
     Dates: start: 19980826, end: 20050829
  12. LOVASTATIN [Concomitant]
     Dosage: 20 MG
     Route: 048
     Dates: start: 19970206, end: 20050829
  13. HEPARIN [Concomitant]
     Dosage: 200 MG
     Route: 042
     Dates: start: 20050830, end: 20050830
  14. TRASYLOL [Suspect]
     Indication: STERNOTOMY
     Dosage: 100 ML BOLUS X 2
     Route: 040
     Dates: start: 20050830, end: 20050830
  15. PROTAMINE SULFATE [Concomitant]
     Dosage: 50 MG X 2
     Route: 042
     Dates: start: 20050830, end: 20050830
  16. LASIX [Concomitant]
     Dosage: 40 MG
     Route: 042
     Dates: start: 20050830, end: 20050830
  17. TRASYLOL [Suspect]
     Indication: CARDIAC PACEMAKER INSERTION

REACTIONS (11)
  - EMOTIONAL DISTRESS [None]
  - DEATH [None]
  - RENAL FAILURE [None]
  - PAIN [None]
  - DEPRESSION [None]
  - INJURY [None]
  - ANHEDONIA [None]
  - ANXIETY [None]
  - HYPOXIC-ISCHAEMIC ENCEPHALOPATHY [None]
  - FEAR [None]
  - ADVERSE EVENT [None]
